FAERS Safety Report 25037923 (Version 1)
Quarter: 2025Q1

REPORT INFORMATION
  Report Type: Spontaneous
  Country: GB (occurrence: GB)
  Receive Date: 20250304
  Receipt Date: 20250304
  Transmission Date: 20250409
  Serious: Yes (Other)
  Sender: VERTEX
  Company Number: GB-VERTEX PHARMACEUTICALS-2025-003268

PATIENT
  Sex: Female

DRUGS (2)
  1. ELEXACAFTOR\IVACAFTOR\TEZACAFTOR [Suspect]
     Active Substance: ELEXACAFTOR\IVACAFTOR\TEZACAFTOR
     Indication: Cystic fibrosis
     Dosage: 2 TAB (75 MG IVA/ 50 MG TEZA/100 MG ELEXA) AM
     Route: 048
     Dates: end: 202501
  2. KALYDECO [Suspect]
     Active Substance: IVACAFTOR
     Indication: Cystic fibrosis
     Route: 048
     Dates: end: 202501

REACTIONS (2)
  - Suicidal ideation [Not Recovered/Not Resolved]
  - Illness [Not Recovered/Not Resolved]
